FAERS Safety Report 8195754-5 (Version None)
Quarter: 2012Q1

REPORT INFORMATION
  Report Type: 
  Country: None (occurrence: None)
  Receive Date: 20120308
  Receipt Date: 20120223
  Transmission Date: 20120608
  Serious: Yes (Hospitalization, Disabling)
  Sender: FDA-Public Use
  Company Number: FR-PFIZER INC-2012050396

PATIENT
  Age: 84 Year
  Sex: Female

DRUGS (5)
  1. EFFEXOR XR [Suspect]
     Indication: DEPRESSION
     Dosage: 75 MG, 1X/DAY
     Route: 048
     Dates: start: 20090522
  2. ARICEPT [Suspect]
     Dosage: 10 MG, 1X/DAY
     Route: 048
     Dates: start: 20111126, end: 20111130
  3. HALDOL [Suspect]
     Indication: BIPOLAR I DISORDER
     Dosage: 4 GTT, 1X/DAY
     Route: 048
     Dates: start: 20100805
  4. HUMALOG [Suspect]
     Indication: TYPE 2 DIABETES MELLITUS
     Dosage: 22 IU MORNING ; 20 IU EVENING
     Route: 058
     Dates: start: 20100604
  5. ARICEPT [Suspect]
     Indication: DEMENTIA
     Dosage: 5 MG, 1X/DAY
     Route: 048
     Dates: start: 20111017, end: 20111125

REACTIONS (2)
  - ANKLE FRACTURE [None]
  - FALL [None]
